FAERS Safety Report 25906586 (Version 1)
Quarter: 2025Q4

REPORT INFORMATION
  Report Type: Spontaneous
  Country: RU (occurrence: RU)
  Receive Date: 20251010
  Receipt Date: 20251010
  Transmission Date: 20260118
  Serious: Yes (Other)
  Sender: ROCHE
  Company Number: RU-ROCHE-10000400260

PATIENT
  Age: 47 Year
  Sex: Female

DRUGS (5)
  1. TRASTUZUMAB [Suspect]
     Active Substance: TRASTUZUMAB
     Indication: Breast cancer metastatic
     Dosage: (8 MG/KG LOADING DOSE)
     Route: 042
  2. TRASTUZUMAB [Suspect]
     Active Substance: TRASTUZUMAB
     Route: 042
  3. ADO-TRASTUZUMAB EMTANSINE [Suspect]
     Active Substance: ADO-TRASTUZUMAB EMTANSINE
     Indication: Breast cancer metastatic
     Route: 042
     Dates: start: 201801
  4. ADO-TRASTUZUMAB EMTANSINE [Suspect]
     Active Substance: ADO-TRASTUZUMAB EMTANSINE
     Route: 042
     Dates: start: 202111
  5. LAPATINIB [Suspect]
     Active Substance: LAPATINIB
     Indication: Breast cancer metastatic
     Dosage: (4 TABLETS) CONSTANTLY)
     Route: 065

REACTIONS (13)
  - Hepatitis toxic [Unknown]
  - Metastases to lymph nodes [Unknown]
  - SARS-CoV-2 test positive [Unknown]
  - Pulmonary calcification [Unknown]
  - Hepatic cyst [Unknown]
  - Osteolysis [Unknown]
  - Nodule [Unknown]
  - Breast mass [Unknown]
  - Pancreatic neoplasm [Unknown]
  - Ovarian cyst [Unknown]
  - Cervical cyst [Unknown]
  - Breast neoplasm [Unknown]
  - Bone lesion [Unknown]
